FAERS Safety Report 4848391-1 (Version None)
Quarter: 2005Q4

REPORT INFORMATION
  Report Type: 
  Country: None (occurrence: None)
  Receive Date: 20051207
  Receipt Date: 20051207
  Transmission Date: 20060501
  Serious: No
  Sender: FDA-Public Use
  Company Number: None

PATIENT

DRUGS (2)
  1. TOPAMAX [Suspect]
     Dosage: TABLET
  2. TOPROL-XL [Suspect]
     Dosage: TABLET,EXTENDED RELEASE

REACTIONS (3)
  - CONVULSION [None]
  - DRUG DISPENSING ERROR [None]
  - MEDICATION ERROR [None]
